FAERS Safety Report 5500306-9 (Version None)
Quarter: 2007Q4

REPORT INFORMATION
  Report Type: 
  Country: None (occurrence: None)
  Receive Date: 20071029
  Receipt Date: 20071022
  Transmission Date: 20080405
  Serious: Yes (Hospitalization)
  Sender: FDA-Public Use
  Company Number: JP-ABBOTT-07P-087-0421676-00

PATIENT
  Age: 62 Year
  Sex: Female

DRUGS (1)
  1. KLARICID [Suspect]
     Indication: PNEUMONIA
     Dosage: NOT REPORTED
     Route: 048
     Dates: start: 20070413

REACTIONS (4)
  - ANTINEUTROPHIL CYTOPLASMIC ANTIBODY POSITIVE [None]
  - GLOMERULONEPHRITIS RAPIDLY PROGRESSIVE [None]
  - POLYARTERITIS NODOSA [None]
  - RENAL INFARCT [None]
